FAERS Safety Report 5295347-3 (Version None)
Quarter: 2007Q2

REPORT INFORMATION
  Report Type: 
  Country: None (occurrence: None)
  Receive Date: 20070412
  Receipt Date: 20070402
  Transmission Date: 20071010
  Serious: Yes (Other)
  Sender: FDA-Public Use
  Company Number: GB-PFIZER INC-2007018217

PATIENT
  Age: 39 Year
  Sex: Female
  Weight: 63.5 kg

DRUGS (14)
  1. CHAMPIX [Suspect]
     Indication: SMOKING CESSATION THERAPY
     Route: 048
     Dates: start: 20070202, end: 20070302
  2. INSULIN [Concomitant]
  3. HUMALOG [Concomitant]
     Route: 058
  4. FERROUS SULFATE TAB [Concomitant]
     Route: 048
  5. VENLAFAXINE HYDROCHLORIDE [Concomitant]
     Route: 048
  6. LANTUS [Concomitant]
     Route: 058
  7. OMEPRAZOLE [Concomitant]
     Route: 048
  8. GABAPENTIN [Concomitant]
     Route: 048
  9. TRAMADOL HCL [Concomitant]
     Route: 048
  10. ASPIRIN [Concomitant]
     Route: 048
  11. SERETIDE [Concomitant]
     Route: 055
  12. VENTOLIN [Concomitant]
     Route: 055
  13. SIMVASTATIN [Concomitant]
     Route: 048
  14. ADCAL-D3 [Concomitant]
     Route: 048

REACTIONS (2)
  - BLOOD GLUCOSE FLUCTUATION [None]
  - BLOOD GLUCOSE INCREASED [None]
